FAERS Safety Report 4918460-6 (Version None)
Quarter: 2006Q1

REPORT INFORMATION
  Report Type: 
  Country: None (occurrence: None)
  Receive Date: 20060214
  Receipt Date: 20060125
  Transmission Date: 20060701
  Serious: Yes (Other)
  Sender: FDA-Public Use
  Company Number: FR200601004444

PATIENT
  Age: 65 Year
  Sex: Female

DRUGS (6)
  1. FORTEO [Suspect]
     Indication: OSTEOPOROSIS
     Dosage: 20 UG DAILY (1/D), SUBCUTANEOUS
     Route: 058
     Dates: start: 20050525
  2. FORTEO PEN (250 MCG/ML) [Concomitant]
  3. XALATAN [Concomitant]
  4. COSOPT (DORZOLAMIDE HYDROCHLORIDE) [Concomitant]
  5. CLENIL-A (BECLOMETASONE DIPROPIONATE) [Concomitant]
  6. CALCICHEW (CALCIUM CARBONATE) [Concomitant]

REACTIONS (4)
  - NEPHROLITHIASIS [None]
  - PAIN [None]
  - REFUSAL OF TREATMENT BY PATIENT [None]
  - RENAL COLIC [None]
